FAERS Safety Report 24820527 (Version 1)
Quarter: 2025Q1

REPORT INFORMATION
  Report Type: Spontaneous
  Country: FR (occurrence: FR)
  Receive Date: 20250108
  Receipt Date: 20250108
  Transmission Date: 20250408
  Serious: Yes (Life-Threatening, Hospitalization, Other)
  Sender: PFIZER
  Company Number: FR-BRISTOL-MYERS SQUIBB COMPANY-2024-120878

PATIENT
  Age: 70 Year
  Sex: Male
  Weight: 111 kg

DRUGS (5)
  1. CARBOPLATIN [Suspect]
     Active Substance: CARBOPLATIN
     Indication: Non-small cell lung cancer stage IIIA
     Dates: start: 20240404
  2. CARBOPLATIN [Suspect]
     Active Substance: CARBOPLATIN
     Dates: start: 20240424
  3. PACLITAXEL [Suspect]
     Active Substance: PACLITAXEL
     Indication: Non-small cell lung cancer stage IIIA
     Dates: start: 20240404
  4. PACLITAXEL [Suspect]
     Active Substance: PACLITAXEL
     Dates: start: 20240424
  5. OPDIVO [Suspect]
     Active Substance: NIVOLUMAB
     Indication: Non-small cell lung cancer
     Dosage: 360 MG, EVERY 3 WEEKS
     Route: 042
     Dates: start: 2024, end: 20240424

REACTIONS (10)
  - Sepsis [Unknown]
  - Pyelonephritis [Unknown]
  - Rash [Unknown]
  - Interstitial lung disease [Unknown]
  - Asthenia [Unknown]
  - Confusional state [Unknown]
  - Immune-mediated encephalitis [Unknown]
  - Pneumonia [Unknown]
  - Neoplasm progression [Unknown]
  - Off label use [Unknown]

NARRATIVE: CASE EVENT DATE: 20240513
